FAERS Safety Report 25727036 (Version 1)
Quarter: 2025Q3

REPORT INFORMATION
  Report Type: Spontaneous
  Country: GB (occurrence: GB)
  Receive Date: 20250826
  Receipt Date: 20250826
  Transmission Date: 20251021
  Serious: Yes (Other)
  Sender: MYLAN
  Company Number: None

PATIENT
  Age: 44 Year
  Sex: Female

DRUGS (8)
  1. CETIRIZINE [Interacting]
     Active Substance: CETIRIZINE HYDROCHLORIDE
     Indication: Product used for unknown indication
     Dosage: 10 MILLIGRAM, PM (ON)
     Dates: end: 20250817
  2. CETIRIZINE [Interacting]
     Active Substance: CETIRIZINE HYDROCHLORIDE
     Dosage: 10 MILLIGRAM, PM (ON)
     Route: 065
     Dates: end: 20250817
  3. CETIRIZINE [Interacting]
     Active Substance: CETIRIZINE HYDROCHLORIDE
     Dosage: 10 MILLIGRAM, PM (ON)
     Route: 065
     Dates: end: 20250817
  4. CETIRIZINE [Interacting]
     Active Substance: CETIRIZINE HYDROCHLORIDE
     Dosage: 10 MILLIGRAM, PM (ON)
     Dates: end: 20250817
  5. LISDEXAMFETAMINE [Interacting]
     Active Substance: LISDEXAMFETAMINE
     Indication: Attention deficit hyperactivity disorder
  6. LISDEXAMFETAMINE [Interacting]
     Active Substance: LISDEXAMFETAMINE
     Route: 065
  7. LISDEXAMFETAMINE [Interacting]
     Active Substance: LISDEXAMFETAMINE
     Route: 065
  8. LISDEXAMFETAMINE [Interacting]
     Active Substance: LISDEXAMFETAMINE

REACTIONS (1)
  - Drug interaction [Recovering/Resolving]
